FAERS Safety Report 23788753 (Version 1)
Quarter: 2024Q2

REPORT INFORMATION
  Report Type: Other
  Country: US (occurrence: US)
  Receive Date: 20240426
  Receipt Date: 20240426
  Transmission Date: 20240716
  Serious: No
  Sender: FDA-Public Use
  Company Number: US-SERB S.A.S.-2153058

PATIENT
  Age: 54 Year
  Sex: Male

DRUGS (1)
  1. URIDINE TRIACETATE [Suspect]
     Active Substance: URIDINE TRIACETATE
     Indication: Toxicity to various agents
     Route: 042

REACTIONS (1)
  - Off label use [Unknown]
